FAERS Safety Report 9535396 (Version 2)
Quarter: 2013Q3

REPORT INFORMATION
  Report Type: Spontaneous
  Country: DK (occurrence: DK)
  Receive Date: 20130918
  Receipt Date: 20130918
  Transmission Date: 20140515
  Serious: Yes (Life-Threatening, Hospitalization)
  Sender: FDA-Public Use
  Company Number: PHHY2012DK083555

PATIENT
  Age: 15 Year
  Sex: Female
  Weight: 76 kg

DRUGS (1)
  1. LINDYNETTE [Suspect]
     Indication: MENSTRUATION IRREGULAR
     Dosage: 1 DF, UNK
     Dates: start: 20120201, end: 20120902

REACTIONS (13)
  - Cerebral infarction [Unknown]
  - Cerebral haemorrhage [Unknown]
  - Epilepsy [Unknown]
  - Cerebral thrombosis [Recovering/Resolving]
  - Malaise [Unknown]
  - Headache [Unknown]
  - Vomiting [Unknown]
  - Fluid retention [Unknown]
  - Monoparesis [Unknown]
  - Hemiparesis [Unknown]
  - Brain oedema [Unknown]
  - Eye disorder [Unknown]
  - Alopecia [Unknown]
